FAERS Safety Report 8064710 (Version 2)
Quarter: 2013Q1

REPORT INFORMATION
  Report Type: Spontaneous
  Country: US (occurrence: US)
  Receive Date: 20110802
  Receipt Date: 20130307
  Transmission Date: 20140127
  Serious: Yes (Hospitalization)
  Sender: FDA-Public Use
  Company Number: US-ROCHE-772892

PATIENT
  Age: 22 Year
  Sex: Female
  Weight: 79.4 kg

DRUGS (3)
  1. ACCUTANE [Suspect]
     Indication: ACNE
     Route: 065
  2. ACCUTANE [Suspect]
     Route: 065
  3. ACCUTANE [Suspect]
     Route: 065
     Dates: start: 199910, end: 199910

REACTIONS (5)
  - Crohn^s disease [Unknown]
  - Small intestinal obstruction [Unknown]
  - Anxiety [Unknown]
  - Eczema asteatotic [Unknown]
  - Headache [Unknown]
